FAERS Safety Report 21365255 (Version 2)
Quarter: 2022Q4

REPORT INFORMATION
  Report Type: Spontaneous
  Country: PL (occurrence: PL)
  Receive Date: 20220922
  Receipt Date: 20221008
  Transmission Date: 20230113
  Serious: Yes (Hospitalization, Other)
  Sender: FDA-Public Use
  Company Number: PL-TEVA-2022-PL-2074761

PATIENT
  Age: 3 Year
  Sex: Male

DRUGS (7)
  1. VINCRISTINE [Suspect]
     Active Substance: VINCRISTINE
     Indication: Embryonal rhabdomyosarcoma
     Dosage: CEV BLOCK
     Route: 065
     Dates: start: 2017
  2. VINCRISTINE [Suspect]
     Active Substance: VINCRISTINE
     Dosage: I3VE BLOCK
     Route: 065
     Dates: start: 2017
  3. CARBOPLATIN [Suspect]
     Active Substance: CARBOPLATIN
     Indication: Embryonal rhabdomyosarcoma
     Dosage: CEV BLOCK
     Route: 065
     Dates: start: 2017
  4. EPIRUBICIN [Suspect]
     Active Substance: EPIRUBICIN
     Indication: Embryonal rhabdomyosarcoma
     Dosage: CEV BLOCK
     Route: 065
     Dates: start: 2017
  5. IFOSFAMIDE [Suspect]
     Active Substance: IFOSFAMIDE
     Indication: Embryonal rhabdomyosarcoma
     Dosage: I3VE BLOCK; DOSE: 3 G/M2
     Route: 065
     Dates: start: 2017
  6. ETOPOSIDE [Suspect]
     Active Substance: ETOPOSIDE
     Indication: Embryonal rhabdomyosarcoma
     Dosage: I3VE BLOCK
     Route: 065
     Dates: start: 2017
  7. ACTINOMYCIN D [Suspect]
     Active Substance: DACTINOMYCIN
     Indication: Embryonal rhabdomyosarcoma
     Dosage: I3VE BLOCK
     Route: 065
     Dates: start: 2017

REACTIONS (3)
  - Infection [Unknown]
  - Febrile neutropenia [Unknown]
  - Drug ineffective [Unknown]

NARRATIVE: CASE EVENT DATE: 20170101
